FAERS Safety Report 4496197-8 (Version None)
Quarter: 2004Q4

REPORT INFORMATION
  Report Type: 
  Country: None (occurrence: None)
  Receive Date: 20041108
  Receipt Date: 20041108
  Transmission Date: 20050328
  Serious: No
  Sender: FDA-Public Use
  Company Number: None

PATIENT
  Age: 48 Year
  Sex: Female
  Weight: 83 kg

DRUGS (1)
  1. GENTAMYCIN SULFATE [Suspect]
     Indication: POSTOPERATIVE WOUND COMPLICATION
     Dosage: 70 MG Q 12 IVPB
     Route: 042
     Dates: start: 20041025, end: 20041104

REACTIONS (1)
  - TINNITUS [None]
